FAERS Safety Report 7161998-4 (Version None)
Quarter: 2010Q4

REPORT INFORMATION
  Report Type: 
  Country: None (occurrence: None)
  Receive Date: 20101215
  Receipt Date: 20100811
  Transmission Date: 20110411
  Serious: Yes (Other)
  Sender: FDA-Public Use
  Company Number: JP-PFIZER INC-2010084966

PATIENT
  Age: 83 Year
  Sex: Male

DRUGS (3)
  1. LYRICA [Suspect]
     Indication: POST HERPETIC NEURALGIA
     Dosage: 150MG/DAY
     Route: 048
     Dates: start: 20100626, end: 20100630
  2. VOLTAREN [Suspect]
     Dosage: UNK
     Route: 048
     Dates: start: 20100512, end: 20100630
  3. VALTREX [Concomitant]
     Indication: HERPES ZOSTER
     Dosage: UNK
     Route: 048
     Dates: start: 20100512, end: 20100518

REACTIONS (1)
  - BONE MARROW FAILURE [None]
